FAERS Safety Report 19088598 (Version 1)
Quarter: 2021Q2

REPORT INFORMATION
  Report Type: Spontaneous
  Country: US (occurrence: US)
  Receive Date: 20210402
  Receipt Date: 20210402
  Transmission Date: 20210717
  Serious: No
  Sender: FDA-Public Use
  Company Number: US-BIOMARINAP-US-2021-135570

PATIENT
  Age: 15 Year
  Sex: Female
  Weight: 37 kg

DRUGS (1)
  1. VIMIZIM [Suspect]
     Active Substance: ELOSULFASE ALFA
     Indication: PRODUCT USED FOR UNKNOWN INDICATION
     Dosage: UNK, QW
     Route: 042

REACTIONS (2)
  - SARS-CoV-2 test positive [Unknown]
  - Pyrexia [Unknown]

NARRATIVE: CASE EVENT DATE: 20210313
